FAERS Safety Report 10010008 (Version 2)
Quarter: 2014Q1

REPORT INFORMATION
  Report Type: Spontaneous
  Country: US (occurrence: US)
  Receive Date: 20140312
  Receipt Date: 20140312
  Transmission Date: 20141002
  Serious: Yes (Other)
  Sender: FDA-Public Use
  Company Number: US-INCYTE CORPORATION-2012IN002196

PATIENT
  Age: 71 Year
  Sex: Male
  Weight: 69.84 kg

DRUGS (19)
  1. JAKAFI [Suspect]
     Indication: MYELOFIBROSIS
     Dosage: 10 MG, BID
     Route: 048
     Dates: start: 20120912, end: 2013
  2. JAKAFI [Suspect]
     Indication: ESSENTIAL THROMBOCYTHAEMIA
     Dosage: 5 MG, BID
     Route: 048
     Dates: start: 2013
  3. ECOTRIN [Concomitant]
  4. LEVOXYL [Concomitant]
  5. FOSAMAX [Concomitant]
  6. PRILOSEC [Concomitant]
  7. PROSCAR [Concomitant]
  8. ASA [Concomitant]
  9. NABUMETONE [Concomitant]
  10. FLONASE [Concomitant]
  11. ACYCLOVIR [Concomitant]
  12. LUNESTA [Concomitant]
     Dosage: UNK
  13. PREDNISONE [Concomitant]
  14. FENOFIBRATE [Concomitant]
  15. ATORVASTATIN [Concomitant]
  16. VITAMIN D [Concomitant]
  17. DOXYCYCLINE [Concomitant]
  18. DITROPAN [Concomitant]
  19. ZANTAC [Concomitant]

REACTIONS (2)
  - Anaemia [Not Recovered/Not Resolved]
  - Drug ineffective [Unknown]
